FAERS Safety Report 13247673 (Version 3)
Quarter: 2017Q1

REPORT INFORMATION
  Report Type: Spontaneous
  Country: DE (occurrence: DE)
  Receive Date: 20170217
  Receipt Date: 20170324
  Transmission Date: 20170428
  Serious: Yes (Hospitalization)
  Sender: FDA-Public Use
  Company Number: DE-TEVA-739476GER

PATIENT
  Age: 47 Year
  Sex: Male
  Weight: 120 kg

DRUGS (7)
  1. CLONIDIN-RATIOPHARM 75 [Suspect]
     Active Substance: CLONIDINE
     Indication: HYPERTENSION
     Dosage: 300 MICROGRAM DAILY; 75-75-75-75
     Route: 048
     Dates: start: 20161114
  2. OLANZAPIN PUREN [Interacting]
     Active Substance: OLANZAPINE
     Dosage: 15 MILLIGRAM DAILY; 0-0-0-15
     Route: 048
     Dates: start: 20161114
  3. CLONIDIN-RATIOPHARM 75 [Interacting]
     Active Substance: CLONIDINE
     Dosage: PERMANENT MEDICATION
     Route: 048
  4. OLANZAPIN PUREN [Interacting]
     Active Substance: OLANZAPINE
     Indication: SCHIZOPHRENIA
     Dosage: 5 MILLIGRAM DAILY; 5-0-0-0
     Route: 048
     Dates: start: 20161114
  5. CLONIDIN-RATIOPHARM 75 [Interacting]
     Active Substance: CLONIDINE
     Route: 048
  6. PANTOPRAZOL 20 MG [Concomitant]
     Active Substance: PANTOPRAZOLE SODIUM
     Indication: PROPHYLAXIS AGAINST GASTROINTESTINAL ULCER
     Dosage: 20 MILLIGRAM DAILY; 20-0-0-0
     Route: 048
     Dates: start: 20161114
  7. LEVETIRACETAM 250 MG [Concomitant]
     Active Substance: LEVETIRACETAM
     Indication: PROPHYLAXIS
     Dosage: 500 MILLIGRAM DAILY; 250-0-250
     Route: 048
     Dates: start: 20161114

REACTIONS (2)
  - Drug ineffective [Unknown]
  - Drug interaction [Unknown]

NARRATIVE: CASE EVENT DATE: 20161114
